FAERS Safety Report 18693355 (Version 1)
Quarter: 2021Q1

REPORT INFORMATION
  Report Type: Spontaneous
  Country: JP (occurrence: JP)
  Receive Date: 20210104
  Receipt Date: 20210104
  Transmission Date: 20210419
  Serious: Yes (Hospitalization, Other)
  Sender: FDA-Public Use
  Company Number: JP-LUPIN PHARMACEUTICALS INC.-2020-11178

PATIENT
  Age: 47 Year
  Sex: Female

DRUGS (7)
  1. HALOPERIDOL. [Suspect]
     Active Substance: HALOPERIDOL
     Indication: SCHIZOPHRENIA
     Dosage: 3 MILLIGRAM, QD
     Route: 065
  2. OLANZAPINE. [Suspect]
     Active Substance: OLANZAPINE
     Indication: CATATONIA
     Dosage: UNK
     Route: 065
  3. ARIPIPRAZOLE. [Suspect]
     Active Substance: ARIPIPRAZOLE
     Indication: CATATONIA
     Dosage: 30 MILLIGRAM, QD
     Route: 065
  4. LORAZEPAM. [Suspect]
     Active Substance: LORAZEPAM
     Indication: CATATONIA
     Dosage: UNK
     Route: 065
  5. HALOPERIDOL. [Suspect]
     Active Substance: HALOPERIDOL
     Indication: CATATONIA
     Dosage: 12 MILLIGRAM, QD
     Route: 065
  6. HALOPERIDOL. [Suspect]
     Active Substance: HALOPERIDOL
     Dosage: 21 MILLIGRAM, QD
     Route: 065
  7. LITHIUM. [Suspect]
     Active Substance: LITHIUM
     Indication: CATATONIA
     Dosage: 800 MILLIGRAM, QD (0.61 MEQ/ML)
     Route: 065

REACTIONS (2)
  - Therapy partial responder [Unknown]
  - Drug ineffective [Unknown]
